FAERS Safety Report 4388484-9 (Version None)
Quarter: 2004Q2

REPORT INFORMATION
  Report Type: 
  Country: None (occurrence: None)
  Receive Date: 20040624
  Receipt Date: 20040616
  Transmission Date: 20050107
  Serious: Yes (Other)
  Sender: FDA-Public Use
  Company Number: 2004219747GB

PATIENT
  Age: 75 Year
  Sex: Male

DRUGS (7)
  1. CABERGOLINE [Suspect]
     Indication: PARKINSON'S DISEASE
     Dosage: 400 MG/DAY; ORAL
     Route: 048
     Dates: start: 20020422, end: 20040419
  2. SINEMET CR [Concomitant]
  3. MADOPAR (BENSERAZIDE HYDROCHLORIDE) [Concomitant]
  4. UNK [Concomitant]
  5. ASPIRIN [Concomitant]
  6. TRAMADOL [Concomitant]
  7. BEZAFIBRATE [Concomitant]

REACTIONS (1)
  - MITRAL VALVE INCOMPETENCE [None]
